FAERS Safety Report 20008012 (Version 1)
Quarter: 2021Q4

REPORT INFORMATION
  Report Type: Report from Study
  Country: US (occurrence: US)
  Receive Date: 20211028
  Receipt Date: 20211028
  Transmission Date: 20220303
  Serious: Yes (Other)
  Sender: FDA-Public Use
  Company Number: 2021A784797

PATIENT
  Sex: Female

DRUGS (1)
  1. TAGRISSO [Suspect]
     Active Substance: OSIMERTINIB
     Indication: Lung neoplasm malignant
     Route: 048
     Dates: start: 20210810

REACTIONS (7)
  - Visual impairment [Unknown]
  - Diarrhoea [Unknown]
  - Vision blurred [Unknown]
  - Tachycardia [Unknown]
  - Somnolence [Unknown]
  - Muscle spasms [Unknown]
  - Intentional dose omission [Unknown]
